FAERS Safety Report 22591422 (Version 1)
Quarter: 2023Q2

REPORT INFORMATION
  Report Type: Spontaneous
  Country: BE (occurrence: BE)
  Receive Date: 20230612
  Receipt Date: 20230612
  Transmission Date: 20230722
  Serious: Yes (Other)
  Sender: FDA-Public Use
  Company Number: None

PATIENT
  Age: 68 Year
  Sex: Female

DRUGS (16)
  1. CARTEOLOL HYDROCHLORIDE [Suspect]
     Active Substance: CARTEOLOL HYDROCHLORIDE
     Indication: Glaucoma
     Route: 047
     Dates: start: 20210804
  2. MEDROL [Concomitant]
     Active Substance: METHYLPREDNISOLONE
     Indication: Product used for unknown indication
  3. XALOF [Concomitant]
     Indication: Product used for unknown indication
     Dosage: COLLYRE EN SOLUTION EN R?CIPIENT UNIDOSE 50 MICROGRAMMES/ML
  4. ACETAMINOPHEN [Concomitant]
     Active Substance: ACETAMINOPHEN
     Indication: Product used for unknown indication
  5. DIAZEPAM [Concomitant]
     Active Substance: DIAZEPAM
     Indication: Product used for unknown indication
  6. PANTOMED [Concomitant]
     Indication: Product used for unknown indication
  7. REPARIL [Concomitant]
     Indication: Product used for unknown indication
  8. RISEDRONATE SODIUM [Concomitant]
     Active Substance: RISEDRONATE SODIUM
     Indication: Product used for unknown indication
  9. PANOTILE [Concomitant]
     Indication: Aphthous ulcer
  10. HYDROCHLOROTHIAZIDE\NEBIVOLOL HYDROCHLORIDE [Concomitant]
     Active Substance: HYDROCHLOROTHIAZIDE\NEBIVOLOL HYDROCHLORIDE
     Indication: Product used for unknown indication
     Dosage: 5 MG / 25 MG
  11. ASPIRIN [Concomitant]
     Active Substance: ASPIRIN
     Indication: Product used for unknown indication
  12. MEBEVERINE [Concomitant]
     Active Substance: MEBEVERINE
     Indication: Product used for unknown indication
  13. ETHYLMORPHINE HYDROCHLORIDE [Concomitant]
     Active Substance: ETHYLMORPHINE HYDROCHLORIDE
     Indication: Product used for unknown indication
  14. MOMETASONE EG [Concomitant]
     Indication: Product used for unknown indication
     Dosage: SUSPENSION POUR PULVERISATION NASALE 50 MICROGRAMMES/DOSE
  15. CALCIUM CARBONATE [Concomitant]
     Active Substance: CALCIUM CARBONATE
     Indication: Product used for unknown indication
     Dosage: 1.25G
  16. SPIRONOLACTONE [Concomitant]
     Active Substance: SPIRONOLACTONE
     Indication: Product used for unknown indication

REACTIONS (2)
  - Fall [Recovering/Resolving]
  - Intentional product misuse [Recovering/Resolving]
